FAERS Safety Report 6266522-6 (Version None)
Quarter: 2009Q3

REPORT INFORMATION
  Report Type: 
  Country: None (occurrence: None)
  Receive Date: 20090710
  Receipt Date: 20090626
  Transmission Date: 20100115
  Serious: Yes (Other)
  Sender: FDA-Public Use
  Company Number: CIO09012832

PATIENT
  Sex: Male

DRUGS (4)
  1. VAPORUB, REGULAR SCENT (CAMPHOR 143.07 MG, CEDAR LEAVE OIL 20.4 MG, EU [Suspect]
     Indication: BRONCHITIS
     Dosage: FREQ FOR 2 DAYS, INTRANASAL
     Route: 045
     Dates: start: 20090621, end: 20090622
  2. SEIZURE MEDICATIONS [Concomitant]
  3. GUAIFENESIN [Concomitant]
  4. AZITHROMYCIN [Concomitant]

REACTIONS (3)
  - CONVULSION [None]
  - EXPIRED DRUG ADMINISTERED [None]
  - INCORRECT ROUTE OF DRUG ADMINISTRATION [None]
